FAERS Safety Report 7936320-3 (Version None)
Quarter: 2011Q4

REPORT INFORMATION
  Report Type: 
  Country: None (occurrence: None)
  Receive Date: 20111123
  Receipt Date: 20111114
  Transmission Date: 20120403
  Serious: Yes (Other)
  Sender: FDA-Public Use
  Company Number: FR-TEVA-309361ISR

PATIENT
  Age: 50 Year
  Sex: Male

DRUGS (4)
  1. RITONAVIR [Interacting]
     Indication: HIV INFECTION
     Dates: start: 20060301
  2. FOSAMPRENAVIR [Interacting]
     Indication: HIV INFECTION
     Dates: start: 20060301
  3. LEVOTHYROXINE SODIUM [Interacting]
     Indication: BASEDOW'S DISEASE
  4. NEVIRAPINE [Suspect]
     Indication: HIV INFECTION
     Dates: start: 20060301

REACTIONS (2)
  - DRUG INTERACTION [None]
  - HYPOTHYROIDISM [None]
